FAERS Safety Report 14060652 (Version 1)
Quarter: 2017Q4

REPORT INFORMATION
  Report Type: Spontaneous
  Country: FR (occurrence: FR)
  Receive Date: 20171007
  Receipt Date: 20171007
  Transmission Date: 20180321
  Serious: Yes (Hospitalization)
  Sender: FDA-Public Use
  Company Number: FR-ROCHE-2001640

PATIENT
  Age: 67 Year
  Sex: Male

DRUGS (12)
  1. CARBOPLATINE [Concomitant]
     Active Substance: CARBOPLATIN
  2. INNOHEP [Concomitant]
     Active Substance: TINZAPARIN SODIUM
  3. HYDROCORTISONE. [Concomitant]
     Active Substance: HYDROCORTISONE
  4. ALPRAZOLAM. [Concomitant]
     Active Substance: ALPRAZOLAM
  5. PERMIXON [Concomitant]
     Active Substance: HERBALS\SAW PALMETTO
  6. PANTOPRAZOLE [Concomitant]
     Active Substance: PANTOPRAZOLE
  7. EPOETIN ALFA [Concomitant]
     Active Substance: ERYTHROPOIETIN
  8. ACTISKENAN [Concomitant]
     Active Substance: MORPHINE SULFATE
  9. SKENAN [Concomitant]
     Active Substance: MORPHINE SULFATE
  10. AVASTIN [Suspect]
     Active Substance: BEVACIZUMAB
     Indication: LUNG ADENOCARCINOMA
     Route: 042
     Dates: start: 201706
  11. ALIMTA [Concomitant]
     Active Substance: PEMETREXED DISODIUM
  12. TAXOL [Concomitant]
     Active Substance: PACLITAXEL

REACTIONS (3)
  - Bronchopleural fistula [Not Recovered/Not Resolved]
  - Cachexia [Not Recovered/Not Resolved]
  - Dyspnoea [Not Recovered/Not Resolved]

NARRATIVE: CASE EVENT DATE: 20170908
